FAERS Safety Report 20459074 (Version 2)
Quarter: 2022Q1

REPORT INFORMATION
  Report Type: Spontaneous
  Country: US (occurrence: US)
  Receive Date: 20220211
  Receipt Date: 20220215
  Transmission Date: 20220423
  Serious: Yes (Other)
  Sender: FDA-Public Use
  Company Number: US-HETERO-HET2022US00337

PATIENT

DRUGS (1)
  1. RITONAVIR [Suspect]
     Active Substance: RITONAVIR
     Indication: Product used for unknown indication
     Dosage: UNK
     Route: 065

REACTIONS (15)
  - Stevens-Johnson syndrome [Unknown]
  - Pain in extremity [Unknown]
  - Dry eye [Unknown]
  - Eye pain [Unknown]
  - Peripheral vascular disorder [Unknown]
  - Petechiae [Unknown]
  - Facial pain [Unknown]
  - Toothache [Unknown]
  - Gingival pain [Unknown]
  - Peripheral coldness [Unknown]
  - Skin lesion [Unknown]
  - Erythema [Unknown]
  - Skin exfoliation [Unknown]
  - Arthralgia [Unknown]
  - Rash [Unknown]
